FAERS Safety Report 14934833 (Version 1)
Quarter: 2018Q2

REPORT INFORMATION
  Report Type: Spontaneous
  Country: US (occurrence: US)
  Receive Date: 20180505
  Receipt Date: 20180505
  Transmission Date: 20180711
  Serious: Yes (Other)
  Sender: FDA-Public Use
  Company Number: None

PATIENT
  Age: 47 Year
  Sex: Female
  Weight: 78.75 kg

DRUGS (1)
  1. CEPHALEXIN 500 MG [Suspect]
     Active Substance: CEPHALEXIN
     Indication: URINARY TRACT INFECTION
     Dosage: ?          QUANTITY:14 CAPSULE(S);?
     Route: 048
     Dates: start: 20180305, end: 20180306

REACTIONS (6)
  - Hepatitis [None]
  - Influenza [None]
  - Arthralgia [None]
  - Skin exfoliation [None]
  - Hypersensitivity [None]
  - Back pain [None]

NARRATIVE: CASE EVENT DATE: 20180305
